FAERS Safety Report 16577679 (Version 2)
Quarter: 2019Q3

REPORT INFORMATION
  Report Type: Report from Study
  Country: US (occurrence: US)
  Receive Date: 20190716
  Receipt Date: 20190723
  Transmission Date: 20191004
  Serious: No
  Sender: FDA-Public Use
  Company Number: US-JNJFOC-20190708176

PATIENT
  Sex: Male

DRUGS (1)
  1. IMBRUVICA [Suspect]
     Active Substance: IBRUTINIB
     Indication: WALDENSTROM^S MACROGLOBULINAEMIA
     Route: 048
     Dates: start: 20190627

REACTIONS (7)
  - Seasonal allergy [Unknown]
  - Diarrhoea [Unknown]
  - Haemorrhage [Recovering/Resolving]
  - Abdominal pain upper [Unknown]
  - Contusion [Unknown]
  - Haemorrhagic diathesis [Unknown]
  - Nasal congestion [Unknown]
